FAERS Safety Report 11456045 (Version 2)
Quarter: 2015Q3

REPORT INFORMATION
  Report Type: Report from Study
  Country: US (occurrence: None)
  Receive Date: 20150903
  Receipt Date: 20150916
  Transmission Date: 20151125
  Serious: No
  Sender: FDA-Public Use
  Company Number: US-MDT-ADR-2015-01696

PATIENT
  Age: 55 Year
  Sex: Male

DRUGS (2)
  1. MORPHINE SULFATE INTRATHECAL 3MG/ML [Suspect]
     Active Substance: MORPHINE SULFATE
     Dosage: 0.1443 MG/DAY
  2. COMPOUNDED BACLOFEN INTRATHECAL 2000MCG/ML [Suspect]
     Active Substance: BACLOFEN
     Dosage: 96.2MCG/DAY

REACTIONS (2)
  - Muscle spasticity [None]
  - Muscle spasms [None]
